FAERS Safety Report 8323003-3 (Version None)
Quarter: 2012Q2

REPORT INFORMATION
  Report Type: 
  Country: None (occurrence: None)
  Receive Date: 20120426
  Receipt Date: 20120416
  Transmission Date: 20120825
  Serious: Yes (Other)
  Sender: FDA-Public Use
  Company Number: IMP_05848_2012

PATIENT
  Age: 55 Year
  Sex: Male

DRUGS (2)
  1. METFORMIN HCL [Suspect]
     Indication: PRODUCT USED FOR UNKNOWN INDICATION
     Dosage: DF, 850 MG, QID
  2. INSULIN [Concomitant]

REACTIONS (10)
  - HYPOGLYCAEMIA [None]
  - LETHARGY [None]
  - ABDOMINAL PAIN [None]
  - BLINDNESS [None]
  - BODY TEMPERATURE DECREASED [None]
  - BLOOD SODIUM DECREASED [None]
  - DIALYSIS [None]
  - BLOOD PRESSURE DECREASED [None]
  - LACTIC ACIDOSIS [None]
  - OSMOTIC DEMYELINATION SYNDROME [None]
